FAERS Safety Report 9575006 (Version 2)
Quarter: 2013Q4

REPORT INFORMATION
  Report Type: Report from Study
  Country: US (occurrence: US)
  Receive Date: 20131001
  Receipt Date: 20131101
  Transmission Date: 20140711
  Serious: Yes (Hospitalization)
  Sender: FDA-Public Use
  Company Number: US-US-EMD SERONO, INC.-7239834

PATIENT
  Age: 58 Year
  Sex: Female

DRUGS (2)
  1. REBIF [Suspect]
     Indication: PRODUCT USED FOR UNKNOWN INDICATION
     Route: 058
     Dates: start: 20130726, end: 20130911
  2. REBIF [Suspect]
     Route: 058
     Dates: start: 201310

REACTIONS (2)
  - Clostridium difficile infection [Recovering/Resolving]
  - Candida infection [Recovered/Resolved]
